FAERS Safety Report 10850710 (Version 1)
Quarter: 2015Q1

REPORT INFORMATION
  Report Type: Spontaneous
  Country: None (occurrence: US)
  Receive Date: 20150222
  Receipt Date: 20150222
  Transmission Date: 20150721
  Serious: No
  Sender: FDA-Public Use
  Company Number: US-ALLERGAN-1406454US

PATIENT
  Sex: Female

DRUGS (2)
  1. BOTOX [Suspect]
     Active Substance: ONABOTULINUMTOXINA
     Dosage: UNK, SINGLE
     Route: 030
     Dates: start: 201307, end: 201307
  2. BOTOX [Suspect]
     Active Substance: ONABOTULINUMTOXINA
     Indication: MIGRAINE
     Dosage: 100 UNITS, SINGLE
     Route: 030
     Dates: start: 20140306, end: 20140306

REACTIONS (6)
  - Paraesthesia [Unknown]
  - Anxiety [Unknown]
  - Hyperaesthesia [Unknown]
  - Malaise [Unknown]
  - Burning sensation [Unknown]
  - Panic reaction [Unknown]

NARRATIVE: CASE EVENT DATE: 20140322
